FAERS Safety Report 20024046 (Version 1)
Quarter: 2021Q4

REPORT INFORMATION
  Report Type: Spontaneous
  Country: DE (occurrence: DE)
  Receive Date: 20211102
  Receipt Date: 20211102
  Transmission Date: 20220303
  Serious: Yes (Hospitalization, Other)
  Sender: FDA-Public Use
  Company Number: DE-ADRED-06953-01

PATIENT
  Age: 59 Year
  Sex: Male
  Weight: 57 kg

DRUGS (7)
  1. ASPIRIN [Suspect]
     Active Substance: ASPIRIN
     Indication: Product used for unknown indication
     Dosage: 100 MG, 1-0-0-0
  2. CLOPIDOGREL [Suspect]
     Active Substance: CLOPIDOGREL BISULFATE
     Indication: Product used for unknown indication
     Dosage: 75 MG, PAUSE
  3. APIXABAN [Suspect]
     Active Substance: APIXABAN
     Indication: Product used for unknown indication
     Dosage: 5 MG, 1-0-0-0
  4. CYANOCOBALAMIN [Concomitant]
     Active Substance: CYANOCOBALAMIN
     Dosage: SCHEMA
  5. SODIUM BICARBONATE [Concomitant]
     Active Substance: SODIUM BICARBONATE
     Dosage: 1-0-1-0
  6. FOLIC ACID [Concomitant]
     Active Substance: FOLIC ACID
     Dosage: 5 MG, SCHEMA
  7. EZETIMIBE\SIMVASTATIN [Concomitant]
     Active Substance: EZETIMIBE\SIMVASTATIN
     Dosage: 10|80 MG, 0-0-1-0

REACTIONS (8)
  - Anaemia [Unknown]
  - Pallor [Unknown]
  - Haematochezia [Unknown]
  - Abdominal pain [Unknown]
  - Dyspnoea [Unknown]
  - General physical health deterioration [Unknown]
  - Electrocardiogram abnormal [Unknown]
  - Lower gastrointestinal haemorrhage [Unknown]
